FAERS Safety Report 6248057-X (Version None)
Quarter: 2009Q2

REPORT INFORMATION
  Report Type: 
  Country: None (occurrence: None)
  Receive Date: 20090626
  Receipt Date: 20090622
  Transmission Date: 20091009
  Serious: Yes (Other)
  Sender: FDA-Public Use
  Company Number: US-JNJCH-2009017240

PATIENT
  Age: 53 Year
  Sex: Female

DRUGS (1)
  1. BENADRYL CREAM [Suspect]
     Indication: RASH
     Dosage: TEXT:UNSPECIFIED
     Route: 061

REACTIONS (2)
  - DYSPNOEA [None]
  - SWELLING [None]
